FAERS Safety Report 22310334 (Version 1)
Quarter: 2023Q2

REPORT INFORMATION
  Report Type: Report from Study
  Country: IT (occurrence: IT)
  Receive Date: 20230511
  Receipt Date: 20230511
  Transmission Date: 20230722
  Serious: Yes (Other)
  Sender: FDA-Public Use
  Company Number: IT-TEVA-2023-IT-2886650

PATIENT
  Age: 63 Year
  Sex: Female

DRUGS (6)
  1. DOXORUBICIN [Suspect]
     Active Substance: DOXORUBICIN
     Indication: Diffuse large B-cell lymphoma stage III
     Dosage: R-CHOP-21 + 2R THERAPY; 50 MG/M 2 ON DAY 1 ADMINISTERED EVERY 21 DAYS FOR SIX COURSES
     Route: 042
  2. VINCRISTINE [Suspect]
     Active Substance: VINCRISTINE
     Indication: Diffuse large B-cell lymphoma stage III
     Dosage: R-CHOP-21 + 2R THERAPY; 1.4 MG/M 2 ON DAY 1 ADMINISTERED EVERY 21 DAYS FOR SIX COURSES
     Route: 042
  3. PREDNISONE [Suspect]
     Active Substance: PREDNISONE
     Indication: Diffuse large B-cell lymphoma stage III
     Dosage: R-CHOP-21 + 2R THERAPY; 100MG ON DAYS 1-5 ADMINISTERED EVERY 21 DAYS FOR SIX COURSES
     Route: 048
  4. LAMIVUDINE [Suspect]
     Active Substance: LAMIVUDINE
     Indication: Prophylaxis
     Dosage: 100 MILLIGRAM DAILY; STARTING 1 WEEK BEFORE THE R-CHOP-21+2R SCHEME AND SCHEDULED UNTIL 6 MONTHS AFT
     Route: 048
  5. CYCLOPHOSPHAMIDE [Suspect]
     Active Substance: CYCLOPHOSPHAMIDE
     Indication: Diffuse large B-cell lymphoma stage III
     Dosage: R-CHOP-21 + 2R THERAPY; 750 MG/M 2 ON DAY 1 ADMINISTERED EVERY 21 DAYS FOR SIX COURSES
     Route: 042
  6. RITUXIMAB [Suspect]
     Active Substance: RITUXIMAB
     Indication: Diffuse large B-cell lymphoma stage III
     Dosage: R-CHOP-21 + 2R THERAPY; 375 MG/M 2 ON DAY 1 ADMINISTERED EVERY 21 DAYS FOR SIX COURSES
     Route: 042

REACTIONS (2)
  - Hepatitis B reactivation [Recovered/Resolved]
  - Drug ineffective [Unknown]
